FAERS Safety Report 5469455-8 (Version None)
Quarter: 2007Q3

REPORT INFORMATION
  Report Type: 
  Country: None (occurrence: None)
  Receive Date: 20070925
  Receipt Date: 20070925
  Transmission Date: 20080115
  Serious: No
  Sender: FDA-Public Use
  Company Number: None

PATIENT
  Sex: Female
  Weight: 59 kg

DRUGS (2)
  1. CYTARABINE [Suspect]
     Dosage: 1162 MG
  2. DAUNORUBICIN HCL [Suspect]
     Dosage: 225 MG

REACTIONS (10)
  - ANOREXIA [None]
  - BIOPSY BONE MARROW ABNORMAL [None]
  - CHOLELITHIASIS [None]
  - COLITIS [None]
  - DIARRHOEA [None]
  - HAEMATOCHEZIA [None]
  - MALNUTRITION [None]
  - NAUSEA [None]
  - ORAL INTAKE REDUCED [None]
  - PYREXIA [None]
